FAERS Safety Report 19502554 (Version 1)
Quarter: 2021Q3

REPORT INFORMATION
  Report Type: Spontaneous
  Country: US (occurrence: US)
  Receive Date: 20210707
  Receipt Date: 20210707
  Transmission Date: 20211014
  Serious: Yes (Other)
  Sender: FDA-Public Use
  Company Number: ALC2021US004081

PATIENT
  Age: 54 Year
  Sex: Male

DRUGS (11)
  1. BSS [Suspect]
     Active Substance: CALCIUM CHLORIDE\MAGNESIUM CHLORIDE\POTASSIUM CHLORIDE\SODIUM ACETATE\SODIUM CHLORIDE\SODIUM CITRATE
     Indication: CATARACT OPERATION
     Dosage: UNK
     Route: 065
  2. LIDOCAINE. [Concomitant]
     Active Substance: LIDOCAINE
     Indication: PRODUCT USED FOR UNKNOWN INDICATION
     Dosage: UNK
     Route: 065
  3. PHENYLEPHRINE [Suspect]
     Active Substance: PHENYLEPHRINE HYDROCHLORIDE
     Indication: PREOPERATIVE CARE
     Dosage: UNK
     Route: 065
  4. PROLENSA [Concomitant]
     Active Substance: BROMFENAC SODIUM
     Indication: POSTOPERATIVE CARE
     Route: 065
  5. CYCLOPENTOLATE HCL [Suspect]
     Active Substance: CYCLOPENTOLATE HYDROCHLORIDE
     Indication: PREOPERATIVE CARE
     Dosage: UNK
     Route: 065
  6. POVIDONE?IODINE. [Suspect]
     Active Substance: POVIDONE-IODINE
     Indication: PREOPERATIVE CARE
     Dosage: UNK
     Route: 065
  7. BSS [Suspect]
     Active Substance: CALCIUM CHLORIDE\MAGNESIUM CHLORIDE\POTASSIUM CHLORIDE\SODIUM ACETATE\SODIUM CHLORIDE\SODIUM CITRATE
     Indication: CATARACT OPERATION
     Dosage: UNK
     Route: 065
  8. BESIVANCE [Concomitant]
     Active Substance: BESIFLOXACIN
     Indication: ANTIBIOTIC PROPHYLAXIS
     Dosage: UNK GTT
     Route: 065
  9. DUREZOL [Concomitant]
     Active Substance: DIFLUPREDNATE
     Indication: POSTOPERATIVE CARE
     Dosage: UNK
     Route: 065
  10. TETRACAINE HCL [Suspect]
     Active Substance: TETRACAINE HYDROCHLORIDE
     Indication: CATARACT OPERATION
     Dosage: UNK
     Route: 065
  11. TYLENOL [Concomitant]
     Active Substance: ACETAMINOPHEN
     Indication: PRODUCT USED FOR UNKNOWN INDICATION
     Route: 065

REACTIONS (2)
  - Anterior chamber inflammation [Recovered/Resolved]
  - Toxic anterior segment syndrome [Recovered/Resolved]

NARRATIVE: CASE EVENT DATE: 20210505
